FAERS Safety Report 6760674-7 (Version None)
Quarter: 2010Q2

REPORT INFORMATION
  Report Type: 
  Country: None (occurrence: None)
  Receive Date: 20100607
  Receipt Date: 20100607
  Transmission Date: 20101027
  Serious: Yes (Other)
  Sender: FDA-Public Use
  Company Number: None

PATIENT
  Age: 35 Year
  Sex: Male

DRUGS (1)
  1. CLOSAPINE 25MG TEVA [Suspect]
     Indication: SCHIZOPHRENIA
     Dosage: 50MG BID PO
     Route: 048
     Dates: start: 20100501, end: 20100604

REACTIONS (2)
  - CONDITION AGGRAVATED [None]
  - CONVULSION [None]
